FAERS Safety Report 5121043-9 (Version None)
Quarter: 2006Q4

REPORT INFORMATION
  Report Type: 
  Country: None (occurrence: None)
  Receive Date: 20061005
  Receipt Date: 20041029
  Transmission Date: 20070319
  Serious: Yes (Other)
  Sender: FDA-Public Use
  Company Number: 2004UW22437

PATIENT
  Age: 72 Year
  Sex: Female
  Weight: 81.6 kg

DRUGS (7)
  1. ARIMIDEX [Suspect]
     Indication: BREAST CANCER
     Route: 048
  2. NAPROSYN [Concomitant]
  3. SYNTHROID [Concomitant]
  4. LASIX [Concomitant]
  5. NEBULIZER [Concomitant]
  6. MULTIVITAMIN [Concomitant]
  7. WHEY PROTEIN [Concomitant]

REACTIONS (6)
  - ARTHRITIS [None]
  - FATIGUE [None]
  - HYPOTRICHOSIS [None]
  - MYALGIA [None]
  - NEUROPATHY [None]
  - WEIGHT DECREASED [None]
